FAERS Safety Report 4517318-4 (Version None)
Quarter: 2005Q1

REPORT INFORMATION
  Report Type: 
  Country: None (occurrence: None)
  Receive Date: 20041008
  Receipt Date: 20030813
  Transmission Date: 20050727
  Serious: Yes (Other)
  Sender: FDA-Public Use
  Company Number: 22061(0)

PATIENT
  Sex: Female

DRUGS (2)
  1. MAXAIR [Suspect]
     Indication: ASTHMA
     Dosage: 1-2 PUFFS EVERY 406 HOURS, RESPIRATORY (INHALATION)
     Route: 055
     Dates: start: 20010101
  2. AZMACORT [Suspect]
     Indication: ASTHMA
     Dosage: RESPIRATORY (INHALATION)
     Route: 055
     Dates: start: 20010101

REACTIONS (2)
  - ASTHMA [None]
  - OEDEMA [None]
